FAERS Safety Report 24024280 (Version 2)
Quarter: 2024Q3

REPORT INFORMATION
  Report Type: Report from Study
  Country: US (occurrence: US)
  Receive Date: 20240627
  Receipt Date: 20240710
  Transmission Date: 20241017
  Serious: No
  Sender: ROCHE
  Company Number: US-ROCHE-3441081

PATIENT
  Age: 61 Year

DRUGS (2)
  1. VABYSMO [Suspect]
     Active Substance: FARICIMAB\FARICIMAB-SVOA
     Indication: Retinal vein occlusion
     Dosage: INJECT 6 MG VIA INTRAVITREAL ADMINISTRATION INTO THE RIGHT EYE EVERY 4 WEEK(S) X 4 DOSES
     Route: 050
     Dates: start: 20230822
  2. VABYSMO [Suspect]
     Active Substance: FARICIMAB\FARICIMAB-SVOA
     Indication: Macular oedema

REACTIONS (5)
  - Product storage error [Unknown]
  - Astigmatism [Unknown]
  - Presbyopia [Unknown]
  - Noninfective conjunctivitis [Unknown]
  - Hypermetropia [Unknown]
